FAERS Safety Report 18691517 (Version 5)
Quarter: 2022Q1

REPORT INFORMATION
  Report Type: Spontaneous
  Country: US (occurrence: US)
  Receive Date: 20210101
  Receipt Date: 20220125
  Transmission Date: 20220423
  Serious: Yes (Hospitalization, Other)
  Sender: FDA-Public Use
  Company Number: US-TEVA-2020-US-1864726

PATIENT
  Age: 68 Year
  Sex: Male
  Weight: 140 kg

DRUGS (27)
  1. VALSARTAN [Suspect]
     Active Substance: VALSARTAN
     Indication: Hypertension
     Dosage: DOSAGE: 320MILLIGRAM
     Route: 065
     Dates: start: 20160105, end: 20160724
  2. VALSARTAN [Suspect]
     Active Substance: VALSARTAN
     Indication: Hypertension
     Dosage: DOSAGE: 320MILLIGRAM
     Route: 065
     Dates: start: 20140929, end: 20150218
  3. VALSARTAN [Suspect]
     Active Substance: VALSARTAN
     Indication: Hypertension
     Dosage: DOSAGE: 320MILLIGRAM
     Route: 065
     Dates: start: 20150412, end: 20160106
  4. VALSARTAN [Suspect]
     Active Substance: VALSARTAN
     Indication: Hypertension
     Dosage: DOSAGE: 320 MILLIGRAM
     Route: 065
     Dates: start: 20160722, end: 20170430
  5. VALSARTAN [Suspect]
     Active Substance: VALSARTAN
     Dosage: DOSAGE: 320 MILLIGRAM
     Route: 065
     Dates: start: 20170602, end: 20180918
  6. DIOVAN [Suspect]
     Active Substance: VALSARTAN
     Indication: Hypertension
     Dosage: DOSAGE: 320MILLIGRAM
     Route: 065
     Dates: start: 20130104, end: 20140830
  7. LOSARTAN POTASSIUM [Concomitant]
     Active Substance: LOSARTAN POTASSIUM
     Indication: Hypertension
     Dosage: DOSAGE: 100 MILLIGRAM
     Route: 065
     Dates: start: 199907
  8. AMLODIPINE [Concomitant]
     Active Substance: AMLODIPINE BESYLATE
  9. METOPROLOL SULPHATE [Concomitant]
     Indication: Hypertension
  10. PANTOPRAZOLE [Concomitant]
     Active Substance: PANTOPRAZOLE
     Indication: Gastrointestinal haemorrhage
  11. TYLENOL [Concomitant]
     Active Substance: ACETAMINOPHEN
     Indication: Pain
     Dosage: TAKE 650MG BY MOUTH EVERY 4 HOURS AS NEEDED
     Route: 048
  12. TYLENOL [Concomitant]
     Active Substance: ACETAMINOPHEN
     Indication: Pyrexia
  13. FERROUS SULFATE [Concomitant]
     Active Substance: FERROUS SULFATE
     Dosage: DOSAGE: 85MILLIGRAM; (SLOW RELEASE IRON) 160 (50FE) MG
     Route: 048
  14. MELATONIN [Concomitant]
     Active Substance: MELATONIN
     Indication: Insomnia
     Dosage: 10MG AT BEDTIME AS NEEDED
     Route: 048
  15. HYDRODIURIL [Concomitant]
     Active Substance: HYDROCHLOROTHIAZIDE
     Dosage: 25 MILLIGRAM DAILY;
     Route: 048
     Dates: start: 20180113
  16. TOPROL XL [Concomitant]
     Active Substance: METOPROLOL SUCCINATE
     Dosage: 200 MILLIGRAM DAILY;
     Route: 048
     Dates: start: 20180813
  17. PROTONIX [Concomitant]
     Active Substance: PANTOPRAZOLE SODIUM
     Dosage: 40 MILLIGRAM DAILY;
     Route: 048
     Dates: start: 20190206
  18. ROXICODONE [Concomitant]
     Active Substance: OXYCODONE HYDROCHLORIDE
     Indication: Pain
     Dosage: 15 MILLIGRAM DAILY; AS NEEDED
     Route: 048
     Dates: start: 20190603, end: 20200730
  19. ELIQUIS [Concomitant]
     Active Substance: APIXABAN
     Dosage: 10 MILLIGRAM DAILY;
     Route: 048
     Dates: start: 20190603
  20. COZAAR [Concomitant]
     Active Substance: LOSARTAN POTASSIUM
     Dosage: 100 MILLIGRAM DAILY;
     Route: 048
     Dates: start: 20190708
  21. HYPROMELLOSES [Concomitant]
     Active Substance: HYPROMELLOSES
     Indication: Dry eye
     Dosage: 0.4 PERCENT ADMINISTER 1 DROP TO BOTH EYES AS NEEDED; NATURAL BALANCE TEARS
     Route: 047
     Dates: start: 20190812
  22. ZOVIRAX [Concomitant]
     Active Substance: ACYCLOVIR
     Dosage: 400 MILLIGRAM DAILY;
     Route: 048
     Dates: start: 20190822
  23. NORVASC [Concomitant]
     Active Substance: AMLODIPINE BESYLATE
     Dosage: 10 MILLIGRAM DAILY;
     Route: 048
     Dates: start: 20190822
  24. VITAMIN B12 [Concomitant]
     Active Substance: CYANOCOBALAMIN
     Dosage: 1000 MICROGRAM DAILY;
     Route: 060
     Dates: start: 20191022
  25. LASIX [Concomitant]
     Active Substance: FUROSEMIDE
     Dosage: 40 MILLIGRAM DAILY;
     Route: 048
     Dates: start: 20200116
  26. REVLIMID [Concomitant]
     Active Substance: LENALIDOMIDE
     Dosage: 10 MILLIGRAM DAILY;
     Route: 048
     Dates: start: 20200203
  27. AMOXIL [Concomitant]
     Active Substance: AMOXICILLIN
     Dates: end: 20200203

REACTIONS (4)
  - Prostate cancer [Recovered/Resolved]
  - Plasma cell myeloma [Recovered/Resolved]
  - Skin cancer [Recovered/Resolved]
  - Coronary artery bypass [Unknown]

NARRATIVE: CASE EVENT DATE: 20211101
